FAERS Safety Report 23163425 (Version 1)
Quarter: 2023Q4

REPORT INFORMATION
  Report Type: Spontaneous
  Country: BG (occurrence: None)
  Receive Date: 20231109
  Receipt Date: 20231109
  Transmission Date: 20240110
  Serious: Yes (Hospitalization, Other)
  Sender: FDA-Public Use
  Company Number: BG-MICRO LABS LIMITED-ML2023-06365

PATIENT
  Age: 56 Year
  Sex: Male

DRUGS (2)
  1. LOSARTAN [Suspect]
     Active Substance: LOSARTAN
     Indication: Hypertension
     Dosage: 50 MG ONCE IN THE EVENING FOR 2 YEARS
  2. FELODIPINE [Concomitant]
     Active Substance: FELODIPINE
     Indication: Hypertension

REACTIONS (1)
  - Basal cell carcinoma [Recovered/Resolved]
